FAERS Safety Report 10995308 (Version 1)
Quarter: 2015Q2

REPORT INFORMATION
  Report Type: Spontaneous
  Country: GB (occurrence: GB)
  Receive Date: 20150407
  Receipt Date: 20150407
  Transmission Date: 20150821
  Serious: Yes (Other)
  Sender: FDA-Public Use
  Company Number: GB-JNJFOC-20150400500

PATIENT
  Age: 82 Year
  Sex: Female
  Weight: 80 kg

DRUGS (5)
  1. METFORMIN [Concomitant]
     Active Substance: METFORMIN HYDROCHLORIDE
     Route: 048
     Dates: start: 2005
  2. BENDROFLUMETHIAZIDE [Concomitant]
     Active Substance: BENDROFLUMETHIAZIDE
     Indication: HYPERTENSION
     Route: 048
     Dates: start: 2000
  3. FOSAMAX [Concomitant]
     Active Substance: ALENDRONATE SODIUM
     Indication: OSTEOPOROSIS
     Route: 048
     Dates: start: 2009
  4. XARELTO [Suspect]
     Active Substance: RIVAROXABAN
     Indication: PRODUCT USED FOR UNKNOWN INDICATION
     Route: 048
     Dates: start: 20150306, end: 20150313
  5. WARFARIN [Concomitant]
     Active Substance: WARFARIN
     Route: 048
     Dates: start: 1991, end: 20150304

REACTIONS (3)
  - Decreased appetite [Unknown]
  - Myalgia [Unknown]
  - Dizziness [Unknown]

NARRATIVE: CASE EVENT DATE: 20150306
